FAERS Safety Report 9216706 (Version 2)
Quarter: 2013Q2

REPORT INFORMATION
  Report Type: Spontaneous
  Country: US (occurrence: US)
  Receive Date: 20130408
  Receipt Date: 20130528
  Transmission Date: 20140414
  Serious: Yes (Death, Hospitalization)
  Sender: FDA-Public Use
  Company Number: US-PFIZER INC-2013107325

PATIENT
  Age: 82 Year
  Sex: Male

DRUGS (11)
  1. INLYTA [Suspect]
     Indication: METASTATIC RENAL CELL CARCINOMA
     Dosage: 4 MG, 2X/DAY
     Route: 048
     Dates: start: 20121012, end: 20121203
  2. INLYTA [Suspect]
     Dosage: 3 MG, 2X/DAY
     Route: 048
     Dates: start: 20121210, end: 20130329
  3. ALLOPURINOL [Concomitant]
  4. MORPHINE SULFATE [Concomitant]
     Dosage: UNK
  5. CALCITROL [Concomitant]
     Dosage: UNK
  6. DEXAMETHASONE [Concomitant]
     Dosage: UNK
  7. DIOVANE [Concomitant]
     Dosage: UNK
  8. FUROSEMIDE [Concomitant]
     Dosage: UNK
  9. METOPROLOL TARTRATE [Concomitant]
     Dosage: UNK
  10. NORCO [Concomitant]
     Dosage: UNK
  11. VITAMIN D [Concomitant]
     Dosage: UNK

REACTIONS (19)
  - Disease progression [Fatal]
  - Metastatic renal cell carcinoma [Fatal]
  - Pneumonia [Fatal]
  - Hypoxia [Unknown]
  - Pneumonia aspiration [Unknown]
  - Respiratory failure [Unknown]
  - Hypervolaemia [Unknown]
  - Pleural effusion [Unknown]
  - Inguinal hernia [Unknown]
  - Asthenia [Unknown]
  - Fatigue [Unknown]
  - Dyspnoea [Unknown]
  - Local swelling [Unknown]
  - Aphasia [Unknown]
  - Diastolic dysfunction [Unknown]
  - Oedema peripheral [Unknown]
  - Diarrhoea [Unknown]
  - Palmar-plantar erythrodysaesthesia syndrome [Unknown]
  - Oral pain [Unknown]
